FAERS Safety Report 23642748 (Version 2)
Quarter: 2024Q2

REPORT INFORMATION
  Report Type: Report from Study
  Country: US (occurrence: None)
  Receive Date: 20240318
  Receipt Date: 20240417
  Transmission Date: 20240716
  Serious: Yes (Death, Hospitalization)
  Sender: FDA-Public Use
  Company Number: 2024A062396

PATIENT
  Sex: Male

DRUGS (1)
  1. FARXIGA [Suspect]
     Active Substance: DAPAGLIFLOZIN PROPANEDIOL
     Route: 048

REACTIONS (4)
  - Respiratory failure [Fatal]
  - Cardiac arrest [Fatal]
  - Coronary artery disease [Fatal]
  - Atrial fibrillation [Fatal]
